FAERS Safety Report 25544609 (Version 1)
Quarter: 2025Q3

REPORT INFORMATION
  Report Type: Spontaneous
  Country: EU (occurrence: EU)
  Receive Date: 20250711
  Receipt Date: 20250711
  Transmission Date: 20251021
  Serious: Yes (Life-Threatening)
  Sender: MYLAN
  Company Number: None

PATIENT
  Age: 67 Year
  Sex: Male
  Weight: 104 kg

DRUGS (72)
  1. DEXAMETHASONE [Suspect]
     Active Substance: DEXAMETHASONE
     Indication: Induction of anaesthesia
     Dates: start: 20250528, end: 20250528
  2. DEXAMETHASONE [Suspect]
     Active Substance: DEXAMETHASONE
     Route: 042
     Dates: start: 20250528, end: 20250528
  3. DEXAMETHASONE [Suspect]
     Active Substance: DEXAMETHASONE
     Route: 042
     Dates: start: 20250528, end: 20250528
  4. DEXAMETHASONE [Suspect]
     Active Substance: DEXAMETHASONE
     Dates: start: 20250528, end: 20250528
  5. SUFENTANIL [Suspect]
     Active Substance: SUFENTANIL
     Indication: Induction of anaesthesia
     Dates: start: 20250528, end: 20250528
  6. SUFENTANIL [Suspect]
     Active Substance: SUFENTANIL
     Route: 042
     Dates: start: 20250528, end: 20250528
  7. SUFENTANIL [Suspect]
     Active Substance: SUFENTANIL
     Route: 042
     Dates: start: 20250528, end: 20250528
  8. SUFENTANIL [Suspect]
     Active Substance: SUFENTANIL
     Dates: start: 20250528, end: 20250528
  9. ROCURONIUM [Suspect]
     Active Substance: ROCURONIUM BROMIDE
     Indication: Induction of anaesthesia
     Dates: start: 20250528, end: 20250528
  10. ROCURONIUM [Suspect]
     Active Substance: ROCURONIUM BROMIDE
     Route: 042
     Dates: start: 20250528, end: 20250528
  11. ROCURONIUM [Suspect]
     Active Substance: ROCURONIUM BROMIDE
     Route: 042
     Dates: start: 20250528, end: 20250528
  12. ROCURONIUM [Suspect]
     Active Substance: ROCURONIUM BROMIDE
     Dates: start: 20250528, end: 20250528
  13. DROPERIDOL [Suspect]
     Active Substance: DROPERIDOL
     Indication: Induction of anaesthesia
     Dates: start: 20250528, end: 20250528
  14. DROPERIDOL [Suspect]
     Active Substance: DROPERIDOL
     Route: 042
     Dates: start: 20250528, end: 20250528
  15. DROPERIDOL [Suspect]
     Active Substance: DROPERIDOL
     Route: 042
     Dates: start: 20250528, end: 20250528
  16. DROPERIDOL [Suspect]
     Active Substance: DROPERIDOL
     Dates: start: 20250528, end: 20250528
  17. PROPOFOL [Suspect]
     Active Substance: PROPOFOL
     Indication: Induction of anaesthesia
     Dates: start: 20250528, end: 20250528
  18. PROPOFOL [Suspect]
     Active Substance: PROPOFOL
     Route: 042
     Dates: start: 20250528, end: 20250528
  19. PROPOFOL [Suspect]
     Active Substance: PROPOFOL
     Route: 042
     Dates: start: 20250528, end: 20250528
  20. PROPOFOL [Suspect]
     Active Substance: PROPOFOL
     Dates: start: 20250528, end: 20250528
  21. KETAMINE [Suspect]
     Active Substance: KETAMINE
     Indication: Induction of anaesthesia
     Dates: start: 20250528, end: 20250528
  22. KETAMINE [Suspect]
     Active Substance: KETAMINE
     Route: 042
     Dates: start: 20250528, end: 20250528
  23. KETAMINE [Suspect]
     Active Substance: KETAMINE
     Route: 042
     Dates: start: 20250528, end: 20250528
  24. KETAMINE [Suspect]
     Active Substance: KETAMINE
     Dates: start: 20250528, end: 20250528
  25. CLOPIDOGREL [Concomitant]
     Active Substance: CLOPIDOGREL BISULFATE
  26. CLOPIDOGREL [Concomitant]
     Active Substance: CLOPIDOGREL BISULFATE
     Route: 065
  27. CLOPIDOGREL [Concomitant]
     Active Substance: CLOPIDOGREL BISULFATE
     Route: 065
  28. CLOPIDOGREL [Concomitant]
     Active Substance: CLOPIDOGREL BISULFATE
  29. METFORMIN HYDROCHLORIDE [Concomitant]
     Active Substance: METFORMIN HYDROCHLORIDE
  30. METFORMIN HYDROCHLORIDE [Concomitant]
     Active Substance: METFORMIN HYDROCHLORIDE
     Route: 065
  31. METFORMIN HYDROCHLORIDE [Concomitant]
     Active Substance: METFORMIN HYDROCHLORIDE
     Route: 065
  32. METFORMIN HYDROCHLORIDE [Concomitant]
     Active Substance: METFORMIN HYDROCHLORIDE
  33. LANTUS [Concomitant]
     Active Substance: INSULIN GLARGINE
  34. LANTUS [Concomitant]
     Active Substance: INSULIN GLARGINE
     Route: 065
  35. LANTUS [Concomitant]
     Active Substance: INSULIN GLARGINE
     Route: 065
  36. LANTUS [Concomitant]
     Active Substance: INSULIN GLARGINE
  37. NOVORAPID [Concomitant]
     Active Substance: INSULIN ASPART
  38. NOVORAPID [Concomitant]
     Active Substance: INSULIN ASPART
     Route: 065
  39. NOVORAPID [Concomitant]
     Active Substance: INSULIN ASPART
     Route: 065
  40. NOVORAPID [Concomitant]
     Active Substance: INSULIN ASPART
  41. ATORVASTATIN [Concomitant]
     Active Substance: ATORVASTATIN
  42. ATORVASTATIN [Concomitant]
     Active Substance: ATORVASTATIN
     Route: 065
  43. ATORVASTATIN [Concomitant]
     Active Substance: ATORVASTATIN
     Route: 065
  44. ATORVASTATIN [Concomitant]
     Active Substance: ATORVASTATIN
  45. EZETIMIBE [Concomitant]
     Active Substance: EZETIMIBE
  46. EZETIMIBE [Concomitant]
     Active Substance: EZETIMIBE
     Route: 065
  47. EZETIMIBE [Concomitant]
     Active Substance: EZETIMIBE
     Route: 065
  48. EZETIMIBE [Concomitant]
     Active Substance: EZETIMIBE
  49. FUROSEMIDE [Concomitant]
     Active Substance: FUROSEMIDE
  50. FUROSEMIDE [Concomitant]
     Active Substance: FUROSEMIDE
     Route: 065
  51. FUROSEMIDE [Concomitant]
     Active Substance: FUROSEMIDE
     Route: 065
  52. FUROSEMIDE [Concomitant]
     Active Substance: FUROSEMIDE
  53. SPIRONOLACTONE [Concomitant]
     Active Substance: SPIRONOLACTONE
  54. SPIRONOLACTONE [Concomitant]
     Active Substance: SPIRONOLACTONE
     Route: 065
  55. SPIRONOLACTONE [Concomitant]
     Active Substance: SPIRONOLACTONE
     Route: 065
  56. SPIRONOLACTONE [Concomitant]
     Active Substance: SPIRONOLACTONE
  57. PAROXETINE HYDROCHLORIDE [Concomitant]
     Active Substance: PAROXETINE HYDROCHLORIDE
  58. PAROXETINE HYDROCHLORIDE [Concomitant]
     Active Substance: PAROXETINE HYDROCHLORIDE
     Route: 065
  59. PAROXETINE HYDROCHLORIDE [Concomitant]
     Active Substance: PAROXETINE HYDROCHLORIDE
     Route: 065
  60. PAROXETINE HYDROCHLORIDE [Concomitant]
     Active Substance: PAROXETINE HYDROCHLORIDE
  61. FENTANYL [Concomitant]
     Active Substance: FENTANYL
  62. FENTANYL [Concomitant]
     Active Substance: FENTANYL
     Route: 065
  63. FENTANYL [Concomitant]
     Active Substance: FENTANYL
     Route: 065
  64. FENTANYL [Concomitant]
     Active Substance: FENTANYL
  65. Spasfon [Concomitant]
  66. Spasfon [Concomitant]
     Route: 065
  67. Spasfon [Concomitant]
     Route: 065
  68. Spasfon [Concomitant]
  69. RACECADOTRIL [Concomitant]
     Active Substance: RACECADOTRIL
  70. RACECADOTRIL [Concomitant]
     Active Substance: RACECADOTRIL
     Route: 065
  71. RACECADOTRIL [Concomitant]
     Active Substance: RACECADOTRIL
     Route: 065
  72. RACECADOTRIL [Concomitant]
     Active Substance: RACECADOTRIL

REACTIONS (1)
  - Anaphylactic shock [Recovered/Resolved]

NARRATIVE: CASE EVENT DATE: 20250528
